FAERS Safety Report 5392319-5 (Version None)
Quarter: 2007Q3

REPORT INFORMATION
  Report Type: 
  Country: None (occurrence: None)
  Receive Date: 20070720
  Receipt Date: 20070709
  Transmission Date: 20080115
  Serious: Yes (Hospitalization)
  Sender: FDA-Public Use
  Company Number: GB-ROCHE-506121

PATIENT
  Age: 66 Year
  Sex: Female
  Weight: 50 kg

DRUGS (4)
  1. CAPECITABINE [Suspect]
     Indication: BREAST CANCER
     Dosage: TWO WEEKS OF TREATMENT AND ONE WEEK OF REST FOR 4 CYCLES.
     Route: 048
     Dates: start: 20060808, end: 20070109
  2. TRASTUZUMAB [Suspect]
     Indication: BREAST CANCER
     Route: 042
     Dates: start: 20070220, end: 20070403
  3. EPIRUBICIN [Suspect]
     Indication: BREAST CANCER
     Dosage: 4 CYCLES.
     Route: 042
     Dates: start: 20060808, end: 20070109
  4. LETROZOLE [Concomitant]

REACTIONS (1)
  - CERVICAL MYELOPATHY [None]
